FAERS Safety Report 9892371 (Version 4)
Quarter: 2016Q2

REPORT INFORMATION
  Report Type: Spontaneous
  Country: JP (occurrence: JP)
  Receive Date: 20140212
  Receipt Date: 20160607
  Transmission Date: 20160815
  Serious: Yes (Other)
  Sender: FDA-Public Use
  Company Number: JP-ELI_LILLY_AND_COMPANY-JP201402000547

PATIENT
  Age: 64 Year
  Sex: Female

DRUGS (4)
  1. FORTEO [Suspect]
     Active Substance: TERIPARATIDE
     Indication: OSTEOPOROSIS
     Dosage: UNK
     Route: 058
  2. ISOSORBID MONONITRATE [Concomitant]
     Active Substance: ISOSORBIDE MONONITRATE
     Route: 065
  3. ADETPHOS [Concomitant]
     Active Substance: ADENOSINE TRIPHOSPHATE
     Route: 065
  4. METHYCOBAL [Concomitant]
     Active Substance: METHYLCOBALAMIN
     Route: 065

REACTIONS (4)
  - Hydronephrosis [Unknown]
  - Nephrolithiasis [Recovering/Resolving]
  - Blood calcium increased [Unknown]
  - Ureterolithiasis [Recovering/Resolving]

NARRATIVE: CASE EVENT DATE: 20131105
